FAERS Safety Report 12696050 (Version 5)
Quarter: 2017Q1

REPORT INFORMATION
  Report Type: Report from Study
  Country: BR (occurrence: BR)
  Receive Date: 20160829
  Receipt Date: 20170119
  Transmission Date: 20170428
  Serious: Yes (Death, Life-Threatening, Hospitalization, Other)
  Sender: FDA-Public Use
  Company Number: BR-ALEXION PHARMACEUTICALS INC-A201606189

PATIENT
  Age: 69 Year
  Sex: Male

DRUGS (3)
  1. SOLIRIS [Suspect]
     Active Substance: ECULIZUMAB
     Dosage: 1200 MG, QW
     Route: 042
  2. SOLIRIS [Suspect]
     Active Substance: ECULIZUMAB
     Indication: PAROXYSMAL NOCTURNAL HAEMOGLOBINURIA
     Dosage: 600 MG, UNK
     Route: 042
     Dates: start: 20150521, end: 20150611
  3. SOLIRIS [Suspect]
     Active Substance: ECULIZUMAB
     Dosage: 900 MG, Q2W
     Route: 042

REACTIONS (17)
  - Cardiac failure [Recovering/Resolving]
  - Pyrexia [Unknown]
  - General physical health deterioration [Unknown]
  - Kidney infection [Not Recovered/Not Resolved]
  - Renal failure [Recovering/Resolving]
  - Lung infection [Not Recovered/Not Resolved]
  - Renal failure [Not Recovered/Not Resolved]
  - Hemiplegia [Unknown]
  - Oropharyngeal pain [Recovering/Resolving]
  - Incorrect dose administered [Not Recovered/Not Resolved]
  - Haemolysis [Recovering/Resolving]
  - Respiratory failure [Not Recovered/Not Resolved]
  - Pneumonia [Not Recovered/Not Resolved]
  - Confusional state [Unknown]
  - Dysuria [Not Recovered/Not Resolved]
  - Multiple organ dysfunction syndrome [Fatal]
  - Urinary tract infection [Unknown]

NARRATIVE: CASE EVENT DATE: 20160813
